FAERS Safety Report 7607682-1 (Version None)
Quarter: 2011Q3

REPORT INFORMATION
  Report Type: 
  Country: None (occurrence: None)
  Receive Date: 20110713
  Receipt Date: 20110517
  Transmission Date: 20111222
  Serious: Yes (Other)
  Sender: FDA-Public Use
  Company Number: PHHY2011FR44080

PATIENT
  Age: 70 Year
  Sex: Male

DRUGS (3)
  1. PROPRANOLOL [Concomitant]
     Dates: end: 20110401
  2. VALSARTAN [Suspect]
     Indication: HYPERTENSION
     Dosage: 80 MG, DAILY
     Route: 048
  3. VALSARTAN [Suspect]
     Dosage: 160 MG, DAILY
     Route: 048
     Dates: start: 20101201

REACTIONS (3)
  - BRONCHITIS [None]
  - COUGH [None]
  - NASOPHARYNGITIS [None]
